FAERS Safety Report 11614389 (Version 1)
Quarter: 2015Q4

REPORT INFORMATION
  Report Type: Spontaneous
  Country: US (occurrence: US)
  Receive Date: 20151009
  Receipt Date: 20151009
  Transmission Date: 20160304
  Serious: Yes (Hospitalization)
  Sender: FDA-Public Use
  Company Number: US-ASTRAZENECA-2015SE96055

PATIENT
  Age: 918 Month
  Sex: Male
  Weight: 58.1 kg

DRUGS (6)
  1. BYETTA [Suspect]
     Active Substance: EXENATIDE
     Dosage: 250 MCG / 1.2 ML, 5 MCG, TWO TIMES A DAY
     Route: 058
     Dates: start: 2011
  2. SIMVASTATIN. [Concomitant]
     Active Substance: SIMVASTATIN
     Route: 048
  3. AMLODIPINE [Concomitant]
     Active Substance: AMLODIPINE BESYLATE
     Route: 048
  4. METOPROLOL D [Suspect]
     Active Substance: METOPROLOL TARTRATE
     Route: 048
  5. ACTOS [Suspect]
     Active Substance: PIOGLITAZONE HYDROCHLORIDE
     Route: 065
  6. GLIPIZIDE. [Concomitant]
     Active Substance: GLIPIZIDE
     Route: 048

REACTIONS (8)
  - Blood glucose increased [Recovered/Resolved]
  - Drug dose omission [Recovered/Resolved]
  - Throat tightness [Unknown]
  - Wheezing [Unknown]
  - Product quality issue [Unknown]
  - Incorrect dose administered by device [None]
  - Nasopharyngitis [Unknown]
  - Drug hypersensitivity [None]

NARRATIVE: CASE EVENT DATE: 201503
